FAERS Safety Report 11469861 (Version 1)
Quarter: 2015Q3

REPORT INFORMATION
  Report Type: Spontaneous
  Country: IN (occurrence: IN)
  Receive Date: 20150908
  Receipt Date: 20150908
  Transmission Date: 20151125
  Serious: Yes (Hospitalization)
  Sender: FDA-Public Use
  Company Number: IN-MYLANLABS-2015M1029782

PATIENT

DRUGS (1)
  1. METHOTREXATE [Suspect]
     Active Substance: METHOTREXATE
     Indication: PSORIASIS
     Dosage: 15MG
     Route: 065

REACTIONS (3)
  - Toxicity to various agents [Recovered/Resolved]
  - Disorientation [Recovered/Resolved]
  - Skin ulcer [Recovered/Resolved]
